FAERS Safety Report 15629643 (Version 2)
Quarter: 2019Q1

REPORT INFORMATION
  Report Type: Report from Study
  Country: DE (occurrence: DE)
  Receive Date: 20181117
  Receipt Date: 20190216
  Transmission Date: 20190417
  Serious: Yes (Hospitalization)
  Sender: FDA-Public Use
  Company Number: DE-ROCHE-2212564

PATIENT
  Age: 59 Year
  Sex: Female
  Weight: 57 kg

DRUGS (3)
  1. BEVACIZUMAB. [Suspect]
     Active Substance: BEVACIZUMAB
     Indication: OVARIAN CANCER
     Route: 042
     Dates: start: 20181005, end: 20181005
  2. PACLITAXEL. [Suspect]
     Active Substance: PACLITAXEL
     Indication: OVARIAN CANCER
     Dosage: DATE OF LAST DOSE PRIOR TO SAE 30/OCT/2018
     Route: 042
     Dates: start: 20181005
  3. ATEZOLIZUMAB. [Suspect]
     Active Substance: ATEZOLIZUMAB
     Indication: OVARIAN CANCER
     Dosage: DATE OF LAST DOSE PRIOR TO SAE 05/OCT/2018
     Route: 042
     Dates: start: 20181005

REACTIONS (1)
  - Condition aggravated [Recovered/Resolved]

NARRATIVE: CASE EVENT DATE: 20181105
